FAERS Safety Report 21878401 (Version 3)
Quarter: 2023Q1

REPORT INFORMATION
  Report Type: Spontaneous
  Country: UA (occurrence: None)
  Receive Date: 20230118
  Receipt Date: 20230201
  Transmission Date: 20230417
  Serious: Yes (Other)
  Sender: FDA-Public Use
  Company Number: 2023A010366

PATIENT
  Sex: Male

DRUGS (14)
  1. BRILINTA [Suspect]
     Active Substance: TICAGRELOR
     Indication: Myocardial infarction
     Route: 048
     Dates: start: 20220727
  2. ASPIRIN [Concomitant]
     Active Substance: ASPIRIN
  3. PLAVIX [Concomitant]
     Active Substance: CLOPIDOGREL BISULFATE
  4. TRIMETAZIDINE DIHYDROCHLORIDE [Concomitant]
     Active Substance: TRIMETAZIDINE DIHYDROCHLORIDE
     Dosage: IN THE MORNING DURING MEALS
  5. PANTOPRAZOLE SODIUM [Concomitant]
     Active Substance: PANTOPRAZOLE SODIUM
  6. TRIFAS [Concomitant]
  7. ROSUVASTATIN CALCIUM [Concomitant]
     Active Substance: ROSUVASTATIN CALCIUM
  8. SPIRONOLACTON SANDOZ [Concomitant]
     Dosage: AT 12:00 CONSTANTLY
  9. INDAPAMIDE\PERINDOPRIL ARGININE [Concomitant]
     Active Substance: INDAPAMIDE\PERINDOPRIL ARGININE
  10. PANANGIN FORTE [Concomitant]
  11. CORDARONE [Concomitant]
     Active Substance: AMIODARONE HYDROCHLORIDE
  12. CORDARONE [Concomitant]
     Active Substance: AMIODARONE HYDROCHLORIDE
  13. CORDARONE [Concomitant]
     Active Substance: AMIODARONE HYDROCHLORIDE
     Dosage: AT 14:00 CONTINUED UNDER THE CONTROL OF ECG AND TSH.
  14. XARELTO [Concomitant]
     Active Substance: RIVAROXABAN
     Dosage: DURING DINNER FOR A LONG TIME

REACTIONS (2)
  - Cardiac fibrillation [Not Recovered/Not Resolved]
  - Off label use [Unknown]
